FAERS Safety Report 24138307 (Version 1)
Quarter: 2024Q3

REPORT INFORMATION
  Report Type: Spontaneous
  Country: CA (occurrence: CA)
  Receive Date: 20240725
  Receipt Date: 20240725
  Transmission Date: 20241017
  Serious: Yes (Other)
  Sender: PURDUE
  Company Number: None

PATIENT
  Age: 83 Year
  Sex: Male

DRUGS (8)
  1. DILAUDID [Suspect]
     Active Substance: HYDROMORPHONE HYDROCHLORIDE
     Indication: Product used for unknown indication
     Dosage: UNK
     Route: 065
  2. ALBUREX [Suspect]
     Active Substance: ALBUMIN HUMAN
     Indication: Surgery
     Dosage: UNK
     Route: 065
  3. ALBUREX [Suspect]
     Active Substance: ALBUMIN HUMAN
     Indication: Splenectomy
  4. ALBUREX [Suspect]
     Active Substance: ALBUMIN HUMAN
     Indication: Lymphadenectomy
  5. ALBUREX [Suspect]
     Active Substance: ALBUMIN HUMAN
     Indication: Surgery
     Dosage: 500 MILLILITER
     Route: 065
  6. ALBUREX [Suspect]
     Active Substance: ALBUMIN HUMAN
     Indication: Splenectomy
  7. ALBUREX [Suspect]
     Active Substance: ALBUMIN HUMAN
     Indication: Lymphadenectomy
  8. ANCEF [Concomitant]
     Active Substance: CEFAZOLIN SODIUM
     Indication: Antibiotic prophylaxis
     Dosage: UNK
     Route: 065

REACTIONS (5)
  - Anaphylactic shock [Unknown]
  - Hypotension [Unknown]
  - Shock [Unknown]
  - Oxygen saturation decreased [Unknown]
  - Urticaria [Unknown]
